FAERS Safety Report 17914748 (Version 1)
Quarter: 2020Q2

REPORT INFORMATION
  Report Type: Spontaneous
  Country: GB (occurrence: GB)
  Receive Date: 20200619
  Receipt Date: 20200619
  Transmission Date: 20200714
  Serious: Yes (Other)
  Sender: FDA-Public Use
  Company Number: GB-PERRIGO-20GB008273

PATIENT
  Age: 12 Month
  Sex: Female
  Weight: 9 kg

DRUGS (1)
  1. IBUPROFEN. [Suspect]
     Active Substance: IBUPROFEN
     Indication: TOOTHACHE
     Dosage: 5 ML
     Route: 048
     Dates: start: 20200507, end: 20200513

REACTIONS (9)
  - Erythema [Unknown]
  - Eructation [Unknown]
  - Retching [Unknown]
  - Diarrhoea [Unknown]
  - Faeces hard [Unknown]
  - Heart rate increased [Recovered/Resolved]
  - Flatulence [Unknown]
  - Palpitations [Recovered/Resolved]
  - Cough [Unknown]

NARRATIVE: CASE EVENT DATE: 20200513
